FAERS Safety Report 8328641-X (Version None)
Quarter: 2012Q2

REPORT INFORMATION
  Report Type: 
  Country: None (occurrence: None)
  Receive Date: 20120430
  Receipt Date: 20120413
  Transmission Date: 20120825
  Serious: Yes (Death)
  Sender: FDA-Public Use
  Company Number: 2012MA005045

PATIENT
  Age: 51 Year
  Sex: Female

DRUGS (2)
  1. PHENOBARBITAL TAB [Suspect]
     Dosage: 100 MG;QD;PO
     Route: 047
  2. WHOLE-BRAIN RADIOTHERAPY [Concomitant]

REACTIONS (8)
  - PANCYTOPENIA [None]
  - TOXIC EPIDERMAL NECROLYSIS [None]
  - ANXIETY [None]
  - URINARY TRACT INFECTION [None]
  - CONFUSIONAL STATE [None]
  - DEVICE RELATED INFECTION [None]
  - GASTROINTESTINAL HAEMORRHAGE [None]
  - STEVENS-JOHNSON SYNDROME [None]
